FAERS Safety Report 9463168 (Version 3)
Quarter: 2025Q2

REPORT INFORMATION
  Report Type: Report from Study
  Country: GB (occurrence: GB)
  Receive Date: 20130817
  Receipt Date: 20250404
  Transmission Date: 20250717
  Serious: Yes (Hospitalization)
  Sender: ROCHE
  Company Number: GB-ROCHE-1260812

PATIENT

DRUGS (3)
  1. RITUXIMAB [Suspect]
     Active Substance: RITUXIMAB
     Indication: Lupus nephritis
     Route: 042
  2. MYCOPHENOLATE MOFETIL [Suspect]
     Active Substance: MYCOPHENOLATE MOFETIL
     Indication: Lupus nephritis
     Dosage: TITRATED TO A MAXIMUM DOSE OF 1.5 G TWICE A DAY TO 12 H TROUGH MYCOPHENOLIC ACID (MPA) LEVELS OF 1.2
     Route: 048
  3. METHYLPREDNISOLONE [Suspect]
     Active Substance: METHYLPREDNISOLONE
     Indication: Lupus nephritis
     Route: 042

REACTIONS (14)
  - Tendon rupture [Unknown]
  - Angina pectoris [Unknown]
  - Empyema [Unknown]
  - Peripheral vascular disorder [Unknown]
  - Heavy menstrual bleeding [Unknown]
  - Cytomegalovirus colitis [Unknown]
  - Colonic abscess [Unknown]
  - Pneumonia [Unknown]
  - Cellulitis [Unknown]
  - Gastroenteritis [Unknown]
  - Upper respiratory tract infection [Unknown]
  - Herpes zoster [Unknown]
  - Type 2 diabetes mellitus [Unknown]
  - Off label use [Unknown]
